FAERS Safety Report 23817875 (Version 3)
Quarter: 2024Q2

REPORT INFORMATION
  Report Type: Spontaneous
  Country: GB (occurrence: GB)
  Receive Date: 20240506
  Receipt Date: 20240604
  Transmission Date: 20240716
  Serious: Yes (Other)
  Sender: FDA-Public Use
  Company Number: GB-CELLTRION INC.-2024GB008938

PATIENT

DRUGS (1)
  1. INFLIXIMAB [Suspect]
     Active Substance: INFLIXIMAB
     Indication: Crohn^s disease
     Dosage: 120MG PRE FILLED PEN
     Route: 058
     Dates: start: 202402

REACTIONS (5)
  - Crohn^s disease [Unknown]
  - Ocular lymphoma [Unknown]
  - Ocular hyperaemia [Unknown]
  - Product administration interrupted [Unknown]
  - Incorrect dose administered [Unknown]
